FAERS Safety Report 18076276 (Version 1)
Quarter: 2020Q3

REPORT INFORMATION
  Report Type: Spontaneous
  Country: US (occurrence: US)
  Receive Date: 20200727
  Receipt Date: 20200727
  Transmission Date: 20201103
  Serious: No
  Sender: FDA-Public Use
  Company Number: US-INCYTE CORPORATION-2020IN006493

PATIENT

DRUGS (2)
  1. JAKAFI [Suspect]
     Active Substance: RUXOLITINIB
     Indication: VITILIGO
     Dosage: 1.5 PERCENT, BID
     Route: 061
     Dates: start: 2019
  2. DEXAMETHASONE. [Suspect]
     Active Substance: DEXAMETHASONE
     Indication: VITILIGO
     Dosage: 2 MILLIGRAM SATURDAY/SUNDAY FOR 10 WEEKS
     Route: 065
     Dates: start: 2019

REACTIONS (2)
  - Myalgia [Recovering/Resolving]
  - Blood creatine phosphokinase increased [Recovering/Resolving]

NARRATIVE: CASE EVENT DATE: 201909
